FAERS Safety Report 5078056-5 (Version None)
Quarter: 2006Q3

REPORT INFORMATION
  Report Type: 
  Country: None (occurrence: None)
  Receive Date: 20060720
  Receipt Date: 20050927
  Transmission Date: 20061208
  Serious: Yes (Hospitalization)
  Sender: FDA-Public Use
  Company Number: 2005133931

PATIENT
  Sex: Female

DRUGS (4)
  1. CELEBREX [Suspect]
     Indication: ILL-DEFINED DISORDER
  2. BEXTRA [Suspect]
     Indication: ILL-DEFINED DISORDER
  3. CORTISONE ACETATE [Suspect]
     Indication: ILL-DEFINED DISORDER
     Dosage: EPIDURAL
     Route: 008
  4. VIOXX [Concomitant]

REACTIONS (2)
  - MULTIPLE ALLERGIES [None]
  - NONSPECIFIC REACTION [None]
